FAERS Safety Report 18651599 (Version 1)
Quarter: 2020Q4

REPORT INFORMATION
  Report Type: Spontaneous
  Country: ES (occurrence: ES)
  Receive Date: 20201223
  Receipt Date: 20201223
  Transmission Date: 20210114
  Serious: Yes (Other)
  Sender: FDA-Public Use
  Company Number: ES-009507513-2012ESP008358

PATIENT
  Age: 84 Year
  Sex: Male

DRUGS (4)
  1. METFORMIN [Concomitant]
     Active Substance: METFORMIN HYDROCHLORIDE
     Dosage: DOSAGE INFORMATION: UNKNOWN; 50 TABLETS, FORMULATION: FILM-COATED TABLET GENERIC; REPORTED AS: METFO
     Route: 048
  2. SINEMET PLUS 25/100 MG COMPRIMIDOS [Suspect]
     Active Substance: CARBIDOPA\LEVODOPA
     Dosage: 1 DOSAGE FORM, Q8H, 100 TABLETS
     Route: 048
     Dates: start: 20201013, end: 20201118
  3. ALLOPURINOL. [Concomitant]
     Active Substance: ALLOPURINOL
     Dosage: DOSAGE INFORMATION: UNKNOWN; 100 TABLETS, TABLET GENERIC; REPORTED AS: ALOPURINOL BLUEFISH
     Route: 048
  4. ATORVASTATIN [Concomitant]
     Active Substance: ATORVASTATIN
     Dosage: DOSAGE INFORMATION: UNKNOWN
     Route: 048

REACTIONS (2)
  - Metamorphopsia [Recovered/Resolved]
  - Diplopia [Not Recovered/Not Resolved]

NARRATIVE: CASE EVENT DATE: 20201118
